FAERS Safety Report 15559112 (Version 10)
Quarter: 2021Q3

REPORT INFORMATION
  Report Type: Spontaneous
  Country: CA (occurrence: CA)
  Receive Date: 20181029
  Receipt Date: 20210916
  Transmission Date: 20211014
  Serious: Yes (Congenital Anomaly, Other)
  Sender: FDA-Public Use
  Company Number: CA-TEVA-2018-CA-966940

PATIENT
  Age: 6 Month
  Sex: Female
  Weight: 3 kg

DRUGS (122)
  1. TEVA?DULOXETINE DR [Suspect]
     Active Substance: DULOXETINE HYDROCHLORIDE
     Indication: PRODUCT USED FOR UNKNOWN INDICATION
     Route: 064
  2. TEVA?DULOXETINE DR [Suspect]
     Active Substance: DULOXETINE HYDROCHLORIDE
     Dosage: 90 MILLIGRAM DAILY;
     Route: 064
  3. TEVA?DULOXETINE DR [Suspect]
     Active Substance: DULOXETINE HYDROCHLORIDE
     Dosage: 90 MILLIGRAM DAILY;
     Route: 064
  4. TEVA?DULOXETINE DR [Suspect]
     Active Substance: DULOXETINE HYDROCHLORIDE
     Route: 064
  5. TEVA?DULOXETINE DR [Suspect]
     Active Substance: DULOXETINE HYDROCHLORIDE
     Route: 063
  6. TEVA?DULOXETINE DR [Suspect]
     Active Substance: DULOXETINE HYDROCHLORIDE
     Route: 063
  7. TEVA?DULOXETINE DR [Suspect]
     Active Substance: DULOXETINE HYDROCHLORIDE
     Route: 064
  8. TEVA?DULOXETINE DR [Suspect]
     Active Substance: DULOXETINE HYDROCHLORIDE
     Route: 064
  9. METHYLPHENIDATE HYDROCHLORIDE. [Suspect]
     Active Substance: METHYLPHENIDATE HYDROCHLORIDE
     Indication: PRODUCT USED FOR UNKNOWN INDICATION
     Route: 064
  10. METHYLPHENIDATE HYDROCHLORIDE. [Suspect]
     Active Substance: METHYLPHENIDATE HYDROCHLORIDE
     Indication: MATERNAL EXPOSURE TIMING UNSPECIFIED
     Route: 063
  11. METHYLPHENIDATE HYDROCHLORIDE. [Suspect]
     Active Substance: METHYLPHENIDATE HYDROCHLORIDE
     Route: 064
  12. METHYLPHENIDATE HYDROCHLORIDE. [Suspect]
     Active Substance: METHYLPHENIDATE HYDROCHLORIDE
     Dosage: 36 MILLIGRAM DAILY;
     Route: 064
  13. OMEPRAZOLE MAGNESIUM. [Suspect]
     Active Substance: OMEPRAZOLE MAGNESIUM
     Indication: PRODUCT USED FOR UNKNOWN INDICATION
     Route: 063
  14. DOMPERIDONE [Suspect]
     Active Substance: DOMPERIDONE
     Indication: LACTATION DISORDER
     Route: 048
  15. LEVOTHYROXINE. [Suspect]
     Active Substance: LEVOTHYROXINE
     Route: 048
  16. LEVOTHYROXINE. [Suspect]
     Active Substance: LEVOTHYROXINE
     Route: 064
  17. URSODEOXYCHOLIC ACID [Suspect]
     Active Substance: URSODIOL
     Route: 064
  18. IRON SULPHATE [Suspect]
     Active Substance: FERROUS SULFATE ANHYDROUS
     Indication: PRODUCT USED FOR UNKNOWN INDICATION
     Route: 064
  19. TEVA?DULOXETINE DR [Suspect]
     Active Substance: DULOXETINE HYDROCHLORIDE
     Indication: FOETAL EXPOSURE DURING PREGNANCY
     Dosage: 90 MILLIGRAM DAILY;
     Route: 064
  20. TEVA?DULOXETINE DR [Suspect]
     Active Substance: DULOXETINE HYDROCHLORIDE
     Dosage: 90 MILLIGRAM DAILY;
     Route: 064
  21. TEVA?DULOXETINE DR [Suspect]
     Active Substance: DULOXETINE HYDROCHLORIDE
     Route: 064
  22. TEVA?DOCUSATE SODIUM [Suspect]
     Active Substance: DOCUSATE SODIUM
     Indication: FOETAL EXPOSURE DURING PREGNANCY
     Route: 064
  23. METHYLPHENIDATE HYDROCHLORIDE. [Suspect]
     Active Substance: METHYLPHENIDATE HYDROCHLORIDE
     Indication: ATTENTION DEFICIT HYPERACTIVITY DISORDER
     Route: 064
  24. METHYLPHENIDATE HYDROCHLORIDE. [Suspect]
     Active Substance: METHYLPHENIDATE HYDROCHLORIDE
     Dosage: 36 MILLIGRAM DAILY;
     Route: 063
  25. DOCUSATE SODIUM DROPS [Suspect]
     Active Substance: DOCUSATE SODIUM
     Route: 063
  26. FERROUS SULFATE. [Suspect]
     Active Substance: FERROUS SULFATE
     Indication: MATERNAL EXPOSURE TIMING UNSPECIFIED
     Route: 048
  27. URSODEOXYCHOLIC ACID [Suspect]
     Active Substance: URSODIOL
     Indication: PRODUCT USED FOR UNKNOWN INDICATION
     Route: 064
  28. RESERVE DOCUSATE DE SODIUM SODIUM DOCUSATE [Suspect]
     Active Substance: DOCUSATE SODIUM
     Route: 063
  29. TEVA?DULOXETINE DR [Suspect]
     Active Substance: DULOXETINE HYDROCHLORIDE
     Indication: DEPRESSION
     Route: 064
  30. TEVA?DULOXETINE DR [Suspect]
     Active Substance: DULOXETINE HYDROCHLORIDE
     Indication: MATERNAL EXPOSURE TIMING UNSPECIFIED
     Route: 063
  31. TEVA?DULOXETINE DR [Suspect]
     Active Substance: DULOXETINE HYDROCHLORIDE
     Indication: ATTENTION DEFICIT HYPERACTIVITY DISORDER
     Dosage: 90 MILLIGRAM DAILY;
     Route: 063
  32. TEVA?DULOXETINE DR [Suspect]
     Active Substance: DULOXETINE HYDROCHLORIDE
     Dosage: 90 MILLIGRAM DAILY;
     Route: 064
  33. TEVA?DULOXETINE DR [Suspect]
     Active Substance: DULOXETINE HYDROCHLORIDE
     Dosage: 90 MILLIGRAM DAILY;
     Route: 064
  34. TEVA?DULOXETINE DR [Suspect]
     Active Substance: DULOXETINE HYDROCHLORIDE
     Route: 063
  35. TEVA?DULOXETINE DR [Suspect]
     Active Substance: DULOXETINE HYDROCHLORIDE
     Route: 064
  36. TEVA?DULOXETINE DR [Suspect]
     Active Substance: DULOXETINE HYDROCHLORIDE
     Route: 064
  37. TEVA?DULOXETINE DR [Suspect]
     Active Substance: DULOXETINE HYDROCHLORIDE
     Route: 063
  38. TEVA?DULOXETINE DR [Suspect]
     Active Substance: DULOXETINE HYDROCHLORIDE
     Route: 063
  39. METHYLPHENIDATE HYDROCHLORIDE. [Suspect]
     Active Substance: METHYLPHENIDATE HYDROCHLORIDE
     Route: 063
  40. CYCLOBENZAPRINE. [Suspect]
     Active Substance: CYCLOBENZAPRINE
     Indication: MATERNAL EXPOSURE TIMING UNSPECIFIED
     Route: 048
  41. OMEPRAZOLE MAGNESIUM. [Suspect]
     Active Substance: OMEPRAZOLE MAGNESIUM
     Indication: FOETAL EXPOSURE DURING PREGNANCY
     Route: 064
  42. OMEPRAZOLE MAGNESIUM. [Suspect]
     Active Substance: OMEPRAZOLE MAGNESIUM
     Route: 048
  43. OMEPRAZOLE MAGNESIUM. [Suspect]
     Active Substance: OMEPRAZOLE MAGNESIUM
     Route: 064
  44. DOCUSATE SODIUM DROPS [Suspect]
     Active Substance: DOCUSATE SODIUM
     Indication: FOETAL EXPOSURE DURING PREGNANCY
     Route: 064
  45. DOCUSATE SODIUM DROPS [Suspect]
     Active Substance: DOCUSATE SODIUM
     Route: 063
  46. DOCUSATE SODIUM DROPS [Suspect]
     Active Substance: DOCUSATE SODIUM
     Route: 064
  47. DOMPERIDONE [Suspect]
     Active Substance: DOMPERIDONE
     Route: 062
  48. DOMPERIDONE [Suspect]
     Active Substance: DOMPERIDONE
     Route: 064
  49. FERROUS SULFATE. [Suspect]
     Active Substance: FERROUS SULFATE
     Indication: PRODUCT USED FOR UNKNOWN INDICATION
     Route: 063
  50. LEVOTHYROXINE. [Suspect]
     Active Substance: LEVOTHYROXINE
     Indication: PRODUCT USED FOR UNKNOWN INDICATION
     Route: 063
  51. URSO [Suspect]
     Active Substance: URSODIOL
     Indication: MATERNAL EXPOSURE TIMING UNSPECIFIED
     Route: 064
  52. TEVA?DULOXETINE DR [Suspect]
     Active Substance: DULOXETINE HYDROCHLORIDE
     Route: 063
  53. TEVA?DULOXETINE DR [Suspect]
     Active Substance: DULOXETINE HYDROCHLORIDE
     Route: 063
  54. METHYLPHENIDATE HYDROCHLORIDE. [Suspect]
     Active Substance: METHYLPHENIDATE HYDROCHLORIDE
     Dosage: 36 MILLIGRAM DAILY;
     Route: 064
  55. METHYLPHENIDATE HYDROCHLORIDE. [Suspect]
     Active Substance: METHYLPHENIDATE HYDROCHLORIDE
     Route: 048
  56. METHYLPHENIDATE HYDROCHLORIDE. [Suspect]
     Active Substance: METHYLPHENIDATE HYDROCHLORIDE
     Route: 063
  57. CYCLOBENZAPRINE. [Suspect]
     Active Substance: CYCLOBENZAPRINE
     Indication: FOETAL EXPOSURE DURING PREGNANCY
     Route: 064
  58. CYCLOBENZAPRINE. [Suspect]
     Active Substance: CYCLOBENZAPRINE
     Route: 064
  59. DOCUSATE SODIUM DROPS [Suspect]
     Active Substance: DOCUSATE SODIUM
     Route: 064
  60. INSULIN [Suspect]
     Active Substance: INSULIN NOS
     Indication: MATERNAL EXPOSURE TIMING UNSPECIFIED
     Route: 064
  61. INSULIN [Suspect]
     Active Substance: INSULIN NOS
     Route: 064
  62. URSODEOXYCHOLIC ACID [Suspect]
     Active Substance: URSODIOL
     Route: 064
  63. TEVA?DULOXETINE DR [Suspect]
     Active Substance: DULOXETINE HYDROCHLORIDE
     Dosage: 90 MILLIGRAM DAILY;
     Route: 064
  64. TEVA?DULOXETINE DR [Suspect]
     Active Substance: DULOXETINE HYDROCHLORIDE
     Route: 063
  65. TEVA?DULOXETINE DR [Suspect]
     Active Substance: DULOXETINE HYDROCHLORIDE
     Route: 063
  66. METHYLPHENIDATE HYDROCHLORIDE. [Suspect]
     Active Substance: METHYLPHENIDATE HYDROCHLORIDE
     Route: 048
  67. METHYLPHENIDATE HYDROCHLORIDE. [Suspect]
     Active Substance: METHYLPHENIDATE HYDROCHLORIDE
     Route: 063
  68. CYCLOBENZAPRINE. [Suspect]
     Active Substance: CYCLOBENZAPRINE
     Route: 048
  69. CYCLOBENZAPRINE. [Suspect]
     Active Substance: CYCLOBENZAPRINE
     Route: 064
  70. DOCUSATE SODIUM DROPS [Suspect]
     Active Substance: DOCUSATE SODIUM
     Route: 063
  71. DOCUSATE SODIUM DROPS [Suspect]
     Active Substance: DOCUSATE SODIUM
     Route: 064
  72. DOMPERIDONE [Suspect]
     Active Substance: DOMPERIDONE
     Indication: FOETAL EXPOSURE DURING PREGNANCY
     Route: 064
  73. DOMPERIDONE [Suspect]
     Active Substance: DOMPERIDONE
     Route: 063
  74. DOMPERIDONE [Suspect]
     Active Substance: DOMPERIDONE
     Route: 048
  75. LEVOTHYROXINE. [Suspect]
     Active Substance: LEVOTHYROXINE
     Indication: FOETAL EXPOSURE DURING PREGNANCY
     Route: 064
  76. LEVOTHYROXINE. [Suspect]
     Active Substance: LEVOTHYROXINE
     Indication: MATERNAL EXPOSURE TIMING UNSPECIFIED
     Route: 048
  77. URSODIOL. [Suspect]
     Active Substance: URSODIOL
     Indication: MATERNAL EXPOSURE TIMING UNSPECIFIED
     Route: 064
  78. URSODIOL. [Suspect]
     Active Substance: URSODIOL
     Indication: FOETAL EXPOSURE DURING PREGNANCY
  79. TEVA?DULOXETINE DR [Suspect]
     Active Substance: DULOXETINE HYDROCHLORIDE
     Dosage: 90 MILLIGRAM DAILY;
     Route: 064
  80. TEVA?DULOXETINE DR [Suspect]
     Active Substance: DULOXETINE HYDROCHLORIDE
     Dosage: 90 MILLIGRAM DAILY;
     Route: 064
  81. TEVA?DULOXETINE DR [Suspect]
     Active Substance: DULOXETINE HYDROCHLORIDE
     Route: 063
  82. TEVA?DULOXETINE DR [Suspect]
     Active Substance: DULOXETINE HYDROCHLORIDE
     Route: 063
  83. METHYLPHENIDATE HYDROCHLORIDE. [Suspect]
     Active Substance: METHYLPHENIDATE HYDROCHLORIDE
     Route: 064
  84. OMEPRAZOLE MAGNESIUM. [Suspect]
     Active Substance: OMEPRAZOLE MAGNESIUM
     Indication: MATERNAL EXPOSURE TIMING UNSPECIFIED
     Route: 048
  85. DOCUSATE SODIUM DROPS [Suspect]
     Active Substance: DOCUSATE SODIUM
     Indication: PRODUCT USED FOR UNKNOWN INDICATION
     Route: 048
  86. DOCUSATE SODIUM DROPS [Suspect]
     Active Substance: DOCUSATE SODIUM
     Route: 064
  87. DOCUSATE SODIUM DROPS [Suspect]
     Active Substance: DOCUSATE SODIUM
     Route: 064
  88. FERROUS SULFATE. [Suspect]
     Active Substance: FERROUS SULFATE
     Route: 048
  89. INSULIN [Suspect]
     Active Substance: INSULIN NOS
     Indication: PRODUCT USED FOR UNKNOWN INDICATION
     Route: 066
  90. INSULIN [Suspect]
     Active Substance: INSULIN NOS
     Route: 064
  91. LEVOTHYROXINE. [Suspect]
     Active Substance: LEVOTHYROXINE
     Route: 048
  92. LEVOTHYROXINE. [Suspect]
     Active Substance: LEVOTHYROXINE
     Route: 064
  93. URSODEOXYCHOLIC ACID [Suspect]
     Active Substance: URSODIOL
     Indication: FOETAL EXPOSURE DURING PREGNANCY
     Route: 064
  94. URSODEOXYCHOLIC ACID [Suspect]
     Active Substance: URSODIOL
     Route: 064
  95. IRON SULPHATE [Suspect]
     Active Substance: FERROUS SULFATE ANHYDROUS
     Indication: FOETAL EXPOSURE DURING PREGNANCY
     Route: 048
  96. IRON SULPHATE [Suspect]
     Active Substance: FERROUS SULFATE ANHYDROUS
     Indication: MATERNAL EXPOSURE TIMING UNSPECIFIED
     Route: 064
  97. TEVA?DULOXETINE DR [Suspect]
     Active Substance: DULOXETINE HYDROCHLORIDE
     Dosage: 90 MILLIGRAM DAILY;
     Route: 064
  98. TEVA?DULOXETINE DR [Suspect]
     Active Substance: DULOXETINE HYDROCHLORIDE
     Route: 064
  99. TEVA?DULOXETINE DR [Suspect]
     Active Substance: DULOXETINE HYDROCHLORIDE
     Route: 063
  100. TEVA?DULOXETINE DR [Suspect]
     Active Substance: DULOXETINE HYDROCHLORIDE
     Route: 063
  101. TEVA?DULOXETINE DR [Suspect]
     Active Substance: DULOXETINE HYDROCHLORIDE
     Route: 063
  102. TEVA?DOCUSATE SODIUM [Suspect]
     Active Substance: DOCUSATE SODIUM
     Indication: MATERNAL EXPOSURE TIMING UNSPECIFIED
     Route: 064
  103. METHYLPHENIDATE HYDROCHLORIDE. [Suspect]
     Active Substance: METHYLPHENIDATE HYDROCHLORIDE
     Indication: FOETAL EXPOSURE DURING PREGNANCY
     Dosage: 36 MILLIGRAM DAILY;
     Route: 064
  104. METHYLPHENIDATE HYDROCHLORIDE. [Suspect]
     Active Substance: METHYLPHENIDATE HYDROCHLORIDE
     Route: 048
  105. METHYLPHENIDATE HYDROCHLORIDE. [Suspect]
     Active Substance: METHYLPHENIDATE HYDROCHLORIDE
     Route: 048
  106. CYCLOBENZAPRINE. [Suspect]
     Active Substance: CYCLOBENZAPRINE
     Indication: PRODUCT USED FOR UNKNOWN INDICATION
     Route: 063
  107. CYCLOBENZAPRINE. [Suspect]
     Active Substance: CYCLOBENZAPRINE
     Route: 048
  108. DOCUSATE SODIUM DROPS [Suspect]
     Active Substance: DOCUSATE SODIUM
     Indication: MATERNAL EXPOSURE TIMING UNSPECIFIED
     Route: 048
  109. DOMPERIDONE [Suspect]
     Active Substance: DOMPERIDONE
     Indication: MATERNAL EXPOSURE TIMING UNSPECIFIED
     Route: 064
  110. DOMPERIDONE [Suspect]
     Active Substance: DOMPERIDONE
     Route: 048
  111. FERROUS SULFATE. [Suspect]
     Active Substance: FERROUS SULFATE
     Route: 064
  112. URSODEOXYCHOLIC ACID [Suspect]
     Active Substance: URSODIOL
     Indication: MATERNAL EXPOSURE TIMING UNSPECIFIED
     Route: 064
  113. TEVA?DULOXETINE DR [Suspect]
     Active Substance: DULOXETINE HYDROCHLORIDE
     Route: 064
  114. METHYLPHENIDATE HYDROCHLORIDE. [Suspect]
     Active Substance: METHYLPHENIDATE HYDROCHLORIDE
     Route: 062
  115. METHYLPHENIDATE HYDROCHLORIDE. [Suspect]
     Active Substance: METHYLPHENIDATE HYDROCHLORIDE
     Dosage: 36 MILLIGRAM DAILY;
     Route: 064
  116. DOCUSATE SODIUM DROPS [Suspect]
     Active Substance: DOCUSATE SODIUM
     Route: 048
  117. FERROUS SULFATE. [Suspect]
     Active Substance: FERROUS SULFATE
     Indication: FOETAL EXPOSURE DURING PREGNANCY
     Route: 064
  118. FERROUS SULFATE. [Suspect]
     Active Substance: FERROUS SULFATE
     Route: 048
  119. FERROUS SULFATE. [Suspect]
     Active Substance: FERROUS SULFATE
     Route: 064
  120. INSULIN [Suspect]
     Active Substance: INSULIN NOS
     Indication: FOETAL EXPOSURE DURING PREGNANCY
     Route: 064
  121. URSODIOL. [Suspect]
     Active Substance: URSODIOL
     Indication: PRODUCT USED FOR UNKNOWN INDICATION
     Route: 065
  122. RESERVE DOCUSATE DE SODIUM SODIUM DOCUSATE [Suspect]
     Active Substance: DOCUSATE SODIUM
     Indication: PRODUCT USED FOR UNKNOWN INDICATION
     Route: 064

REACTIONS (14)
  - Pre-eclampsia [Unknown]
  - Somnolence [Unknown]
  - Cholestasis [Unknown]
  - Lung cyst [Unknown]
  - Exposure via breast milk [Unknown]
  - Pneumonia [Unknown]
  - Hypothyroidism [Unknown]
  - Foetal exposure during pregnancy [Unknown]
  - Respiratory tract malformation [Unknown]
  - Pulmonary malformation [Unknown]
  - Congenital anomaly [Unknown]
  - Blood pressure increased [Unknown]
  - Exposure during pregnancy [Unknown]
  - Maternal exposure during breast feeding [Unknown]
